FAERS Safety Report 16499629 (Version 1)
Quarter: 2019Q3

REPORT INFORMATION
  Report Type: Spontaneous
  Country: JP (occurrence: JP)
  Receive Date: 20190701
  Receipt Date: 20190701
  Transmission Date: 20191004
  Serious: Yes (Other)
  Sender: FDA-Public Use
  Company Number: JP-GLAXOSMITHKLINE-JP2019JPN115367

PATIENT

DRUGS (4)
  1. PREDONINE [Concomitant]
     Active Substance: PREDNISOLONE
     Dosage: 7.5 MG, UNK
  2. NEORAL [Concomitant]
     Active Substance: CYCLOSPORINE
     Dosage: 6 DF, UNK
  3. PREDONINE [Concomitant]
     Active Substance: PREDNISOLONE
     Dosage: 5 MG, UNK
  4. BENLYSTA [Suspect]
     Active Substance: BELIMUMAB
     Dosage: UNK
     Route: 041

REACTIONS (3)
  - Mycobacterium avium complex infection [Unknown]
  - Respiratory symptom [Unknown]
  - Condition aggravated [Unknown]
